FAERS Safety Report 15189761 (Version 3)
Quarter: 2019Q2

REPORT INFORMATION
  Report Type: Report from Study
  Country: IT (occurrence: IT)
  Receive Date: 20180724
  Receipt Date: 20190410
  Transmission Date: 20190711
  Serious: Yes (Other)
  Sender: FDA-Public Use
  Company Number: IT-PFIZER INC-2018290867

PATIENT
  Age: 17 Year
  Sex: Male

DRUGS (5)
  1. RIVOTRIL [Concomitant]
     Active Substance: CLONAZEPAM
  2. FLUOXETINE [Concomitant]
     Active Substance: FLUOXETINE HYDROCHLORIDE
  3. DEPAKIN [Suspect]
     Active Substance: VALPROATE SODIUM
     Indication: ACUTE PSYCHOSIS
     Dosage: 1 DF, TOTAL
     Route: 055
     Dates: start: 20180617, end: 20180617
  4. TAVOR (LORAZEPAM) [Suspect]
     Active Substance: LORAZEPAM
     Indication: ACUTE PSYCHOSIS
     Dosage: 1 DF, TOTAL
     Route: 055
     Dates: start: 20180617, end: 20180617
  5. RISPERDAL [Suspect]
     Active Substance: RISPERIDONE
     Indication: ACUTE PSYCHOSIS
     Dosage: 1 DF, TOTAL
     Route: 055
     Dates: start: 20180617, end: 20180617

REACTIONS (5)
  - Asthenia [Recovering/Resolving]
  - Malaise [Recovering/Resolving]
  - Coma [Recovering/Resolving]
  - Drug abuse [Unknown]
  - Speech disorder [Recovering/Resolving]

NARRATIVE: CASE EVENT DATE: 20180617
